FAERS Safety Report 6333635-X (Version None)
Quarter: 2009Q3

REPORT INFORMATION
  Report Type: 
  Country: None (occurrence: None)
  Receive Date: 20090829
  Receipt Date: 20090521
  Transmission Date: 20100115
  Serious: No
  Sender: FDA-Public Use
  Company Number: US-ABBOTT-09P-163-0574991-00

PATIENT
  Sex: Female

DRUGS (5)
  1. SIMCOR [Suspect]
     Indication: HIGH DENSITY LIPOPROTEIN DECREASED
     Dosage: 500MG/20MG AT BEDTIME
     Dates: start: 20090517
  2. DIOVAN [Concomitant]
     Indication: DRUG USE FOR UNKNOWN INDICATION
  3. FLUOXETINE [Concomitant]
     Indication: DRUG USE FOR UNKNOWN INDICATION
  4. VITAMIN B-12 [Concomitant]
     Indication: DRUG USE FOR UNKNOWN INDICATION
  5. VITAMIN D [Concomitant]
     Indication: DRUG USE FOR UNKNOWN INDICATION

REACTIONS (5)
  - ASTHENIA [None]
  - FATIGUE [None]
  - HYPERSOMNIA [None]
  - MOBILITY DECREASED [None]
  - MYALGIA [None]
